FAERS Safety Report 9479602 (Version 1)
Quarter: 2013Q3

REPORT INFORMATION
  Report Type: Report from Study
  Country: AR (occurrence: AR)
  Receive Date: 20130827
  Receipt Date: 20130827
  Transmission Date: 20140515
  Serious: Yes (Other)
  Sender: FDA-Public Use
  Company Number: PHHY2013AR091921

PATIENT
  Age: 65 Year
  Sex: Male

DRUGS (5)
  1. ONBREZ [Suspect]
     Indication: CHRONIC OBSTRUCTIVE PULMONARY DISEASE
     Dosage: 150 UG, QD AT NIGHT
  2. ONBREZ [Suspect]
     Dosage: 150 UG, QD AT NIGHT
  3. SERETIDE [Concomitant]
     Indication: CHRONIC OBSTRUCTIVE PULMONARY DISEASE
     Dosage: 1 PUFF IN MORNING: 2 PUFFS IN AFTERNOON
  4. SPIRIVA [Concomitant]
     Indication: CHRONIC OBSTRUCTIVE PULMONARY DISEASE
     Dosage: 1 DF, QD IN THE AFTERNOON
  5. EXFORGE [Concomitant]
     Indication: BLOOD PRESSURE DECREASED
     Dosage: 1 DF, QD
     Route: 048

REACTIONS (8)
  - Bronchitis [Recovering/Resolving]
  - Increased bronchial secretion [Recovering/Resolving]
  - Dyspnoea [Recovering/Resolving]
  - Blood pressure decreased [Recovered/Resolved]
  - Rib fracture [Recovered/Resolved]
  - Fall [Recovered/Resolved]
  - Cough [Unknown]
  - Dry throat [Recovering/Resolving]
